FAERS Safety Report 24661477 (Version 1)
Quarter: 2024Q4

REPORT INFORMATION
  Report Type: Spontaneous
  Country: FR (occurrence: FR)
  Receive Date: 20241125
  Receipt Date: 20241125
  Transmission Date: 20250114
  Serious: Yes (Hospitalization, Other)
  Sender: TEVA
  Company Number: None

PATIENT
  Age: 90 Year
  Sex: Female
  Weight: 50 kg

DRUGS (4)
  1. LEVETIRACETAM [Suspect]
     Active Substance: LEVETIRACETAM
     Indication: Wrong patient
     Dosage: TIME INTERVAL: TOTAL
     Route: 048
     Dates: start: 20240707, end: 20240707
  2. DIGOXIN [Suspect]
     Active Substance: DIGOXIN
     Indication: Wrong patient
     Dosage: TIME INTERVAL: TOTAL
     Route: 048
     Dates: start: 20240707, end: 20240707
  3. JARDIANCE [Suspect]
     Active Substance: EMPAGLIFLOZIN
     Indication: Wrong patient
     Dosage: TIME INTERVAL: TOTAL
     Route: 048
     Dates: start: 20240707, end: 20240707
  4. FUROSEMIDE [Suspect]
     Active Substance: FUROSEMIDE
     Indication: Wrong patient
     Dosage: TIME INTERVAL: TOTAL: SCORED TABLET
     Route: 048
     Dates: start: 20240707, end: 20240707

REACTIONS (3)
  - Hypokalaemia [Recovered/Resolved]
  - Fall [Recovered/Resolved]
  - Drug dispensed to wrong patient [Recovered/Resolved]

NARRATIVE: CASE EVENT DATE: 20240707
